FAERS Safety Report 4345371-X (Version None)
Quarter: 2004Q2

REPORT INFORMATION
  Report Type: 
  Country: None (occurrence: None)
  Receive Date: 20040420
  Receipt Date: 20040413
  Transmission Date: 20050107
  Serious: Yes (Hospitalization)
  Sender: FDA-Public Use
  Company Number: 2004199642US

PATIENT
  Age: 10 Year
  Sex: Male
  Weight: 31.8 kg

DRUGS (7)
  1. GENOTROPIN [Suspect]
     Indication: HYPOPITUITARISM
     Dosage: 11.2 MG, WEEKLY, SUBCUTANEOUS
     Route: 058
     Dates: start: 20010624, end: 20030801
  2. RISPERDAL [Concomitant]
  3. ADDERAL (DEXAMFETAMINE SACCHARATE, AMFETAMINE SULFATE, DEXAMFETAMINE S [Concomitant]
  4. SEROQUEL [Concomitant]
  5. ZOLOFT [Concomitant]
  6. LAMICTAL [Concomitant]
  7. GEODON [Concomitant]

REACTIONS (3)
  - AGGRESSION [None]
  - DRUG WITHDRAWAL SYNDROME [None]
  - IRRITABILITY [None]
